FAERS Safety Report 21122419 (Version 9)
Quarter: 2022Q3

REPORT INFORMATION
  Report Type: Spontaneous
  Country: US (occurrence: US)
  Receive Date: 20220723
  Receipt Date: 20220925
  Transmission Date: 20221026
  Serious: Yes (Other)
  Sender: FDA-Public Use
  Company Number: US-UNITED THERAPEUTICS-UNT-2022-015675

PATIENT
  Age: 56 Year
  Sex: Female
  Weight: 45.805 kg

DRUGS (10)
  1. REMODULIN [Suspect]
     Active Substance: TREPROSTINIL
     Indication: Pulmonary arterial hypertension
     Dosage: UNK, CONTINUING
     Route: 058
     Dates: start: 20210908
  2. REMODULIN [Suspect]
     Active Substance: TREPROSTINIL
     Dosage: 0.0305 ?G/KG, CONTINUING
     Route: 058
  3. REMODULIN [Suspect]
     Active Substance: TREPROSTINIL
     Dosage: 0.035 ?G/KG, CONTINUING
     Route: 058
  4. REMODULIN [Suspect]
     Active Substance: TREPROSTINIL
     Dosage: UNK, CONTINUING
     Route: 058
  5. REMODULIN [Suspect]
     Active Substance: TREPROSTINIL
     Dosage: UNK, CONTINUING
     Route: 058
  6. REMODULIN [Suspect]
     Active Substance: TREPROSTINIL
     Dosage: UNK (AT PUMP RATE 0.046 ML), CONTINUING
     Route: 058
  7. REMODULIN [Suspect]
     Active Substance: TREPROSTINIL
     Dosage: UNK (AT PUMP RATE 0.048 ML), CONTINUING
     Route: 058
  8. LECITHIN\POLOXAMER 407 [Suspect]
     Active Substance: LECITHIN\POLOXAMER 407
     Indication: Product used for unknown indication
     Dosage: UNK
     Route: 065
  9. AMOXICILLIN [Suspect]
     Active Substance: AMOXICILLIN
     Indication: Product used for unknown indication
     Dosage: UNK
     Route: 065
     Dates: start: 202208
  10. OPSUMIT [Concomitant]
     Active Substance: MACITENTAN
     Indication: Product used for unknown indication
     Dosage: UNK
     Route: 065

REACTIONS (33)
  - Eye haemorrhage [Unknown]
  - Infusion site pain [Unknown]
  - Dyspnoea exertional [Unknown]
  - Infusion site pruritus [Not Recovered/Not Resolved]
  - Sensitive skin [Unknown]
  - Cough [Unknown]
  - Dyspnoea [Unknown]
  - Hot flush [Unknown]
  - Dizziness [Unknown]
  - Infusion site swelling [Recovering/Resolving]
  - Skin irritation [Unknown]
  - Asthenia [Unknown]
  - Nausea [Unknown]
  - Pyrexia [Unknown]
  - Feeling hot [Unknown]
  - Swelling face [Unknown]
  - Pain [Unknown]
  - Weight increased [Unknown]
  - Food poisoning [Unknown]
  - Fatigue [Unknown]
  - Decreased appetite [Unknown]
  - Diarrhoea [Unknown]
  - Dyspepsia [Unknown]
  - Sensitivity to weather change [Unknown]
  - Flushing [Unknown]
  - Tooth fracture [Unknown]
  - Abdominal discomfort [Unknown]
  - Abdominal pain upper [Unknown]
  - Vomiting [Unknown]
  - Gallbladder disorder [Unknown]
  - Device dislocation [Unknown]
  - Product administration interrupted [Recovered/Resolved]
  - Visual impairment [Unknown]

NARRATIVE: CASE EVENT DATE: 20220801
